FAERS Safety Report 17352761 (Version 3)
Quarter: 2020Q4

REPORT INFORMATION
  Report Type: Report from Study
  Country: NL (occurrence: NL)
  Receive Date: 20200131
  Receipt Date: 20201103
  Transmission Date: 20210113
  Serious: Yes (Death, Other)
  Sender: FDA-Public Use
  Company Number: NL-AMGEN-NLDSL2020015449

PATIENT
  Age: 71 Year
  Sex: Male

DRUGS (14)
  1. FENTANYL. [Concomitant]
     Active Substance: FENTANYL
     Dosage: 100UG/DO FL 20DO
  2. MIDAZOLAM. [Concomitant]
     Active Substance: MIDAZOLAM
     Dosage: 5 MILLIGRAM PER MILLILITRE (1ML)
  3. MORPHINE [Concomitant]
     Active Substance: MORPHINE
     Dosage: 10 MILLIGRAM PER MILLILITRE
  4. CALCIUM CARBONATE;COLECALCIFEROL [Concomitant]
     Active Substance: CALCIUM CARBONATE\CHOLECALCIFEROL
     Dosage: 1.25G/440IE (500MG CA), QD
  5. FENTANYL. [Concomitant]
     Active Substance: FENTANYL
     Dosage: 100UG/DO FL 40DO
  6. METOCLOPRAMIDE. [Concomitant]
     Active Substance: METOCLOPRAMIDE
     Dosage: 10 MILLIGRAM, 3D1T
  7. TRIPTORELINE [Concomitant]
     Active Substance: TRIPTORELIN
     Dosage: 22.5 MILLIGRAM, 1MZ1IJ.
  8. LEVOMEPROMAZINE [Concomitant]
     Active Substance: LEVOMEPROMAZINE
     Dosage: 25 MILLIGRAM PER MILLILITRE
  9. SODIUM CHLORIDE. [Concomitant]
     Active Substance: SODIUM CHLORIDE
     Dosage: 9 MILLIGRAM PER MILLILITRE
  10. LOPERAMIDE [Concomitant]
     Active Substance: LOPERAMIDE
     Dosage: 2 MILLIGRAM, 6D1C
  11. PREDNISOLON [PREDNISOLONE] [Concomitant]
     Active Substance: PREDNISOLONE
     Dosage: 5 MILLIGRAM, QOD (2D1T)
  12. MORPHINE [Concomitant]
     Active Substance: MORPHINE
     Dosage: 20 MILLIGRAM PER MILLILITRE
  13. XGEVA [Suspect]
     Active Substance: DENOSUMAB
     Indication: PROPHYLAXIS
     Dosage: 120 MILLIGRAM/1.7ML, Q4WK
     Route: 058
     Dates: start: 20190325, end: 2020
  14. MIDAZOLAM. [Concomitant]
     Active Substance: MIDAZOLAM
     Dosage: 5 MILLIGRAM PER MILLILITRE (10ML)

REACTIONS (2)
  - Exposed bone in jaw [Not Recovered/Not Resolved]
  - Death [Fatal]

NARRATIVE: CASE EVENT DATE: 20200903
